FAERS Safety Report 5857595-0 (Version None)
Quarter: 2008Q3

REPORT INFORMATION
  Report Type: 
  Country: None (occurrence: None)
  Receive Date: 20080825
  Receipt Date: 20080825
  Transmission Date: 20090109
  Serious: No
  Sender: FDA-Public Use
  Company Number: None

PATIENT
  Age: 50 Year
  Sex: Female
  Weight: 72.5755 kg

DRUGS (1)
  1. CIPROFLOXACIN [Suspect]
     Indication: SINUSITIS
     Dates: start: 20080820, end: 20080824

REACTIONS (5)
  - DIZZINESS [None]
  - FEELING ABNORMAL [None]
  - HEADACHE [None]
  - SOCIAL AVOIDANT BEHAVIOUR [None]
  - SOMNOLENCE [None]
